FAERS Safety Report 7039560-3 (Version None)
Quarter: 2010Q4

REPORT INFORMATION
  Report Type: 
  Country: None (occurrence: None)
  Receive Date: 20101012
  Receipt Date: 20101005
  Transmission Date: 20110411
  Serious: Yes (Hospitalization)
  Sender: FDA-Public Use
  Company Number: A0764852A

PATIENT
  Age: 48 Year
  Sex: Male
  Weight: 152.3 kg

DRUGS (6)
  1. AVANDIA [Suspect]
     Dosage: 4MG TWICE PER DAY
     Route: 048
     Dates: end: 20041101
  2. GLUCOPHAGE [Concomitant]
  3. GLYNASE [Concomitant]
  4. PRINIVIL [Concomitant]
  5. INDOCIN [Concomitant]
  6. MECLIZINE [Concomitant]

REACTIONS (2)
  - ANGINA PECTORIS [None]
  - CORONARY ARTERY DISEASE [None]
